FAERS Safety Report 7676720-2 (Version None)
Quarter: 2011Q3

REPORT INFORMATION
  Report Type: 
  Country: None (occurrence: None)
  Receive Date: 20110805
  Receipt Date: 20110721
  Transmission Date: 20111222
  Serious: Yes (Life-Threatening, Hospitalization, Congenital Anomaly)
  Sender: FDA-Public Use
  Company Number: 2011MA009270

PATIENT
  Age: 1 Day

DRUGS (2)
  1. HYDROCORTISONE 1% OINTMENT [Suspect]
     Indication: ASTHMA
     Dosage: IV
  2. NSAIDS (NO PREF. NAME) [Suspect]

REACTIONS (10)
  - CONGENITAL TRICUSPID VALVE INCOMPETENCE [None]
  - DUCTUS ARTERIOSUS PREMATURE CLOSURE [None]
  - MATERNAL DRUGS AFFECTING FOETUS [None]
  - INCREASED VENTRICULAR AFTERLOAD [None]
  - PREMATURE BABY [None]
  - RIGHT VENTRICULAR SYSTOLIC PRESSURE INCREASED [None]
  - CARDIOMEGALY [None]
  - CAESAREAN SECTION [None]
  - HYDROPS FOETALIS [None]
  - SUPRAVENTRICULAR TACHYCARDIA [None]
